FAERS Safety Report 7275307-3 (Version None)
Quarter: 2011Q1

REPORT INFORMATION
  Report Type: 
  Country: None (occurrence: None)
  Receive Date: 20110204
  Receipt Date: 20110126
  Transmission Date: 20110831
  Serious: Yes (Other)
  Sender: FDA-Public Use
  Company Number: PHHY2011VE07168

PATIENT
  Sex: Female

DRUGS (5)
  1. ANTIHYPERTENSIVES [Concomitant]
  2. PLAVIX [Concomitant]
     Dosage: UNK
  3. ACLASTA [Suspect]
     Indication: OSTEOPENIA
     Dosage: 5 MG
     Dates: start: 20100101
  4. GLUCOFAGE [Concomitant]
  5. GALVUS [Concomitant]

REACTIONS (1)
  - ANAL HAEMORRHAGE [None]
